FAERS Safety Report 7401056-4 (Version None)
Quarter: 2011Q2

REPORT INFORMATION
  Report Type: 
  Country: None (occurrence: None)
  Receive Date: 20110407
  Receipt Date: 20110329
  Transmission Date: 20111010
  Serious: Yes (Hospitalization, Other)
  Sender: FDA-Public Use
  Company Number: BE-ABBOTT-11P-013-0715194-00

PATIENT
  Sex: Female

DRUGS (24)
  1. BELSAR [Concomitant]
     Indication: HYPERTENSION
  2. ARANESP [Concomitant]
     Indication: HYPERTENSION
  3. ZANIDIP [Concomitant]
     Indication: CARDIOMYOPATHY
  4. CARDIOASPIRINE [Concomitant]
     Indication: HYPERTENSION
  5. CALCIUM [Concomitant]
     Indication: OSTEOPOROSIS PROPHYLAXIS
  6. ASAFLOW [Concomitant]
  7. CLONIDINE HCL [Concomitant]
     Indication: CARDIOMYOPATHY
  8. CLOZAN [Concomitant]
     Indication: INSOMNIA
  9. CLONIDINE HCL [Concomitant]
     Indication: HYPERTENSION
  10. NOBITEN [Concomitant]
     Indication: CARDIOMYOPATHY
  11. NOVOMIX 30 [Concomitant]
     Indication: DIABETES MELLITUS
     Dosage: 24E IN THE AM + 16E IN THE PM
  12. ASAFLOW [Concomitant]
     Indication: PRODUCT USED FOR UNKNOWN INDICATION
  13. ACETYLCYSTEINE [Concomitant]
     Indication: PRODUCT USED FOR UNKNOWN INDICATION
  14. ZANIDIP [Concomitant]
     Indication: HYPERTENSION
  15. BURINEX [Concomitant]
     Indication: PRODUCT USED FOR UNKNOWN INDICATION
  16. HUMIRA [Suspect]
     Indication: RHEUMATOID ARTHRITIS
     Dates: start: 20060405
  17. BELSAR [Concomitant]
     Indication: CARDIOMYOPATHY
  18. NOBITEN [Concomitant]
     Indication: HYPERTENSION
  19. CARDIOASPIRINE [Concomitant]
     Indication: CARDIOMYOPATHY
  20. ARANESP [Concomitant]
     Indication: CARDIOMYOPATHY
  21. D-CURE [Concomitant]
     Indication: OSTEOPOROSIS PROPHYLAXIS
  22. LIPITOR [Concomitant]
     Indication: HYPERCHOLESTEROLAEMIA
  23. NITRODERM TTS 15 [Concomitant]
     Indication: PRODUCT USED FOR UNKNOWN INDICATION
     Dosage: 18 HRS, FROM 18H (EVENING) TO 12H (NOON)
  24. DUPHALAC [Concomitant]
     Indication: PRODUCT USED FOR UNKNOWN INDICATION

REACTIONS (12)
  - HYPERTENSIVE NEPHROPATHY [None]
  - ARTHRALGIA [None]
  - LUNG INFECTION [None]
  - JOINT SWELLING [None]
  - SKIN ULCER [None]
  - MOBILITY DECREASED [None]
  - MITRAL VALVE INCOMPETENCE [None]
  - ATRIOVENTRICULAR BLOCK [None]
  - DIABETIC END STAGE RENAL DISEASE [None]
  - AORTIC STENOSIS [None]
  - COUGH [None]
  - DIARRHOEA [None]
